FAERS Safety Report 5158718-1 (Version None)
Quarter: 2006Q4

REPORT INFORMATION
  Report Type: 
  Country: None (occurrence: None)
  Receive Date: 20061128
  Receipt Date: 20061127
  Transmission Date: 20070319
  Serious: Yes (Other)
  Sender: FDA-Public Use
  Company Number: US-GLAXOSMITHKLINE-A0628720A

PATIENT
  Age: 13 Year
  Sex: Male

DRUGS (2)
  1. LAMICTAL [Suspect]
     Indication: BIPOLAR DISORDER
     Dosage: 25MG PER DAY
     Route: 048
  2. RISPERDAL [Concomitant]

REACTIONS (7)
  - FEELING HOT [None]
  - OCULAR HYPERAEMIA [None]
  - PRURITUS [None]
  - PRURITUS GENITAL [None]
  - RASH [None]
  - RASH PAPULAR [None]
  - STEVENS-JOHNSON SYNDROME [None]
